FAERS Safety Report 5324862-9 (Version None)
Quarter: 2007Q2

REPORT INFORMATION
  Report Type: 
  Country: None (occurrence: None)
  Receive Date: 20070515
  Receipt Date: 20070509
  Transmission Date: 20071010
  Serious: Yes (Life-Threatening)
  Sender: FDA-Public Use
  Company Number: IT-ELI_LILLY_AND_COMPANY-IT200705002595

PATIENT
  Sex: Female

DRUGS (1)
  1. GEMCITABINE HCL [Suspect]

REACTIONS (4)
  - HYPOTENSION [None]
  - OEDEMA [None]
  - PYREXIA [None]
  - RASH [None]
